FAERS Safety Report 9103398 (Version 5)
Quarter: 2015Q4

REPORT INFORMATION
  Report Type: Spontaneous
  Country: NO (occurrence: NO)
  Receive Date: 20130219
  Receipt Date: 20151224
  Transmission Date: 20160305
  Serious: Yes (Other)
  Sender: FDA-Public Use
  Company Number: NO-BRISTOL-MYERS SQUIBB COMPANY-17387291

PATIENT
  Age: 63 Year
  Sex: Male

DRUGS (3)
  1. PANITUMUMAB [Suspect]
     Active Substance: PANITUMUMAB
     Indication: NEURALGIA
     Dosage: 6 MG/KG,
     Route: 042
  2. PREGABALIN. [Concomitant]
     Active Substance: PREGABALIN
     Indication: NEURALGIA
     Dosage: 75 MG, BID
     Route: 065
  3. ERBITUX [Suspect]
     Active Substance: CETUXIMAB
     Indication: NEURALGIA
     Dosage: 2 TIMES/WK
     Route: 042

REACTIONS (5)
  - Off label use [Unknown]
  - Dry skin [Unknown]
  - Dermatitis acneiform [Recovering/Resolving]
  - Uveitis [Recovering/Resolving]
  - Iridocyclitis [Recovered/Resolved]
